FAERS Safety Report 17325014 (Version 2)
Quarter: 2020Q1

REPORT INFORMATION
  Report Type: Report from Study
  Country: US (occurrence: US)
  Receive Date: 20200127
  Receipt Date: 20200130
  Transmission Date: 20200409
  Serious: Yes (Hospitalization, Other)
  Sender: FDA-Public Use
  Company Number: US-ROCHE-2527206

PATIENT
  Age: 63 Year
  Sex: Female
  Weight: 61.29 kg

DRUGS (3)
  1. OXYBUTYNIN. [Concomitant]
     Active Substance: OXYBUTYNIN CHLORIDE
     Indication: BLADDER SPASM
     Route: 048
  2. MYRBETRIQ [Concomitant]
     Active Substance: MIRABEGRON
     Indication: BLADDER SPASM
     Route: 065
     Dates: start: 2019
  3. OCREVUS [Suspect]
     Active Substance: OCRELIZUMAB
     Indication: SECONDARY PROGRESSIVE MULTIPLE SCLEROSIS
     Route: 042
     Dates: start: 201712, end: 2019

REACTIONS (13)
  - Herpes zoster [Not Recovered/Not Resolved]
  - Lung perforation [Unknown]
  - Pruritus [Recovered/Resolved]
  - Pain [Recovered/Resolved]
  - Urinary tract infection [Recovered/Resolved]
  - Muscle spasms [Not Recovered/Not Resolved]
  - Rib fracture [Recovered/Resolved]
  - Neuralgia [Not Recovered/Not Resolved]
  - Fall [Unknown]
  - Muscular weakness [Not Recovered/Not Resolved]
  - Flail chest [Recovered/Resolved]
  - Weight increased [Unknown]
  - Vomiting projectile [Unknown]

NARRATIVE: CASE EVENT DATE: 2019
